FAERS Safety Report 8391452-3 (Version None)
Quarter: 2012Q2

REPORT INFORMATION
  Report Type: 
  Country: None (occurrence: None)
  Receive Date: 20120529
  Receipt Date: 20120516
  Transmission Date: 20120825
  Serious: Yes (Other)
  Sender: FDA-Public Use
  Company Number: CA-ELI_LILLY_AND_COMPANY-CA201204003507

PATIENT
  Age: 68 Year
  Sex: Female

DRUGS (14)
  1. CETIRIZINE HCL [Concomitant]
     Dosage: 20 MG, QOD
     Route: 065
  2. FORTEO [Suspect]
     Indication: OSTEOPOROSIS
     Dosage: 250 UG, QD
     Route: 058
     Dates: start: 20110901, end: 20111123
  3. PANTOPRAZOLE [Concomitant]
     Dosage: 40 MG, QOD
     Route: 065
  4. CALCIUM [Concomitant]
     Dosage: UNK, UNKNOWN
     Route: 065
  5. LASIX [Concomitant]
     Dosage: 40 MG, QOD
     Route: 065
  6. SYNTHROID [Concomitant]
     Dosage: 50 UG, UNK
     Route: 065
  7. SPIRIVA [Concomitant]
     Dosage: UNK, QD
     Route: 065
  8. MOTILIUM [Concomitant]
     Dosage: UNK, UNKNOWN
     Route: 065
  9. POTASSIUM CHLORIDE [Concomitant]
     Dosage: 33 MEQ, BID
     Route: 065
  10. ATIVAN [Concomitant]
     Dosage: 1 MG, PRN
     Route: 065
  11. FLEXERIL [Concomitant]
     Dosage: UNK, UNKNOWN
     Route: 065
  12. VITAMIN D [Concomitant]
  13. NAPROSYN [Concomitant]
     Dosage: UNK, UNKNOWN
     Route: 065
  14. TORADOL [Concomitant]

REACTIONS (13)
  - INTRA-ABDOMINAL PRESSURE INCREASED [None]
  - BACK PAIN [None]
  - FLATULENCE [None]
  - SWELLING FACE [None]
  - ASTHENIA [None]
  - ABDOMINAL DISTENSION [None]
  - EYE DISORDER [None]
  - PERIORBITAL OEDEMA [None]
  - CRYING [None]
  - MOOD ALTERED [None]
  - SENSATION OF HEAVINESS [None]
  - ABDOMINAL PAIN [None]
  - CONSTIPATION [None]
